FAERS Safety Report 6265803-X (Version None)
Quarter: 2009Q3

REPORT INFORMATION
  Report Type: 
  Country: None (occurrence: None)
  Receive Date: 20090713
  Receipt Date: 20090701
  Transmission Date: 20100115
  Serious: Yes (Other)
  Sender: FDA-Public Use
  Company Number: A0777577A

PATIENT
  Sex: Female

DRUGS (7)
  1. LOVAZA [Suspect]
     Indication: BLOOD CHOLESTEROL INCREASED
     Dosage: 1G TWICE PER DAY
     Route: 048
     Dates: start: 20080401, end: 20090301
  2. SYNTHROID [Concomitant]
  3. ACIPHEX [Concomitant]
  4. BENICAR HCT [Concomitant]
  5. PREMARIN [Concomitant]
  6. SYMAX SL [Concomitant]
  7. DARVOCET [Concomitant]

REACTIONS (6)
  - COMPUTERISED TOMOGRAM ABNORMAL [None]
  - DIARRHOEA [None]
  - DYSPNOEA [None]
  - PNEUMONITIS [None]
  - PRURITUS [None]
  - RASH [None]
